FAERS Safety Report 18464205 (Version 1)
Quarter: 2020Q4

REPORT INFORMATION
  Report Type: Report from Study
  Country: FR (occurrence: FR)
  Receive Date: 20201104
  Receipt Date: 20201104
  Transmission Date: 20210114
  Serious: Yes (Death, Hospitalization, Other)
  Sender: FDA-Public Use
  Company Number: FR-JAZZ-2020-FR-004328

PATIENT

DRUGS (2)
  1. DEFITELIO [Suspect]
     Active Substance: DEFIBROTIDE SODIUM
     Indication: VENOOCCLUSIVE LIVER DISEASE
     Dosage: 20.8 MILLIGRAM/KILOGRAM/DAY
     Route: 042
     Dates: start: 20170317, end: 2017
  2. DEFITELIO [Suspect]
     Active Substance: DEFIBROTIDE SODIUM
     Dosage: 16.4 MILLIGRAM/KILOGRAM/DAY
     Route: 042
     Dates: start: 2017, end: 20170403

REACTIONS (9)
  - Pneumonia pseudomonal [Fatal]
  - Haemophagocytic lymphohistiocytosis [Fatal]
  - Graft versus host disease in gastrointestinal tract [Fatal]
  - Multiple organ dysfunction syndrome [Fatal]
  - Septic shock [Fatal]
  - Drug ineffective [Unknown]
  - Pulmonary alveolar haemorrhage [Fatal]
  - Off label use [Unknown]
  - Acute respiratory distress syndrome [Fatal]

NARRATIVE: CASE EVENT DATE: 20170317
